FAERS Safety Report 7657056-2 (Version None)
Quarter: 2011Q3

REPORT INFORMATION
  Report Type: 
  Country: None (occurrence: None)
  Receive Date: 20110804
  Receipt Date: 20110727
  Transmission Date: 20111222
  Serious: Yes (Other)
  Sender: FDA-Public Use
  Company Number: US-SANOFI-AVENTIS-2011SA048485

PATIENT
  Age: 78 Year
  Sex: Female

DRUGS (2)
  1. PLAVIX [Suspect]
     Indication: EMBOLISM
     Route: 048
     Dates: start: 20100801
  2. ASPIRIN [Suspect]
     Route: 065

REACTIONS (5)
  - BRAIN OEDEMA [None]
  - MUTISM [None]
  - COMA [None]
  - CONFUSIONAL STATE [None]
  - CONVULSION [None]
